FAERS Safety Report 21238339 (Version 2)
Quarter: 2022Q3

REPORT INFORMATION
  Report Type: Spontaneous
  Country: US (occurrence: None)
  Receive Date: 20220822
  Receipt Date: 20220825
  Transmission Date: 20221026
  Serious: Yes (Hospitalization)
  Sender: FDA-Public Use
  Company Number: US-ACS-20220079

PATIENT
  Age: 36 Year
  Sex: Male

DRUGS (4)
  1. CEFTAZIDIME [Suspect]
     Active Substance: CEFTAZIDIME
     Indication: Peritonitis
     Route: 033
     Dates: start: 20220429, end: 20220520
  2. CEFTAZIDIME [Suspect]
     Active Substance: CEFTAZIDIME
     Indication: Peritonitis
     Dosage: PATIENT WAS CONTINUED ON IV CEFTAZIDIME WHILE ADMITTED TO THE HOSPITAL.
     Route: 033
     Dates: start: 20220621, end: 20220712
  3. VANCOMYCIN [Concomitant]
     Active Substance: VANCOMYCIN
     Route: 033
     Dates: start: 20220429, end: 20220520
  4. VANCOMYCIN [Concomitant]
     Active Substance: VANCOMYCIN
     Dosage: PATIENT WAS CONTINUED ON IV VANCOMYCIN WHILE ADMITTED TO THE HOSPITAL
     Route: 033
     Dates: start: 20220621, end: 20220712

REACTIONS (3)
  - Nausea [Recovered/Resolved]
  - Vomiting [Recovered/Resolved]
  - Off label use [Recovered/Resolved]
